FAERS Safety Report 11651426 (Version 3)
Quarter: 2015Q4

REPORT INFORMATION
  Report Type: Spontaneous
  Country: CA (occurrence: CA)
  Receive Date: 20151022
  Receipt Date: 20151211
  Transmission Date: 20160304
  Serious: Yes (Other)
  Sender: FDA-Public Use
  Company Number: CA-AMGEN-CANSP2015110145

PATIENT
  Age: 69 Year
  Sex: Female

DRUGS (9)
  1. GOLD [Concomitant]
     Active Substance: GOLD
     Dosage: UNK
  2. PLAQUENIL [Concomitant]
     Active Substance: HYDROXYCHLOROQUINE SULFATE
     Dosage: UNK
  3. HYDROMORPHONE [Concomitant]
     Active Substance: HYDROMORPHONE
     Indication: PAIN
  4. ENBREL [Suspect]
     Active Substance: ETANERCEPT
     Indication: RHEUMATOID ARTHRITIS
     Dosage: UNK
     Route: 065
  5. METHOTREXATE [Concomitant]
     Active Substance: METHOTREXATE
     Dosage: UNK
  6. PREDNISONE. [Concomitant]
     Active Substance: PREDNISONE
  7. ORENCIA [Suspect]
     Active Substance: ABATACEPT
     Indication: PRODUCT USED FOR UNKNOWN INDICATION
     Dosage: UNK
     Route: 065
  8. LEFLUNOMIDE. [Concomitant]
     Active Substance: LEFLUNOMIDE
  9. SULFASALAZINE. [Concomitant]
     Active Substance: SULFASALAZINE

REACTIONS (7)
  - Hip arthroplasty [Unknown]
  - Lower limb fracture [Unknown]
  - Post procedural infection [Unknown]
  - Drug effect decreased [Unknown]
  - Arthropathy [Unknown]
  - Arthritis [Not Recovered/Not Resolved]
  - Bone disorder [Unknown]
